FAERS Safety Report 9438488 (Version 3)
Quarter: 2013Q3

REPORT INFORMATION
  Report Type: Spontaneous
  Country: JP (occurrence: JP)
  Receive Date: 20130802
  Receipt Date: 20130905
  Transmission Date: 20140515
  Serious: No
  Sender: FDA-Public Use
  Company Number: JP-UCBSA-093969

PATIENT
  Age: 75 Year
  Sex: Female

DRUGS (7)
  1. NEUPRO [Suspect]
     Indication: RESTLESS LEGS SYNDROME
     Route: 061
     Dates: start: 20130710, end: 20130713
  2. CLOSTRIDIUM BUTYRICUM [Concomitant]
     Dosage: DAILY DOSE: 6 TABS
  3. ADENOSINE TRIPHOSPHATE DISODIUM HYDRATE [Concomitant]
  4. SENNOSIDE [Concomitant]
  5. NINJIN^YOEITO [Concomitant]
  6. SHOKENCHUTO [Concomitant]
  7. CROTAMITON [Concomitant]
     Dosage: DAILY DOSE: QS

REACTIONS (2)
  - Pain in extremity [Recovered/Resolved]
  - Skin irritation [Unknown]
